FAERS Safety Report 4971766-7 (Version None)
Quarter: 2006Q2

REPORT INFORMATION
  Report Type: 
  Country: None (occurrence: None)
  Receive Date: 20060406
  Receipt Date: 20060327
  Transmission Date: 20061013
  Serious: Yes (Hospitalization)
  Sender: FDA-Public Use
  Company Number: MEDI-0004299

PATIENT
  Age: 34 Month

DRUGS (5)
  1. SYNAGIS [Suspect]
     Indication: ANTIVIRAL PROPHYLAXIS
     Dosage: 170 MG, 1 IN 30 D, INTRAMUSCULAR
     Route: 030
     Dates: start: 20051019, end: 20051117
  2. SYNAGIS [Suspect]
     Indication: ANTIVIRAL PROPHYLAXIS
     Dosage: 170 MG, 1 IN 30 D, INTRAMUSCULAR
     Route: 030
     Dates: start: 20051019
  3. SYNAGIS [Suspect]
     Indication: ANTIVIRAL PROPHYLAXIS
     Dosage: 170 MG, 1 IN 30 D, INTRAMUSCULAR
     Route: 030
     Dates: start: 20051219
  4. SYNAGIS [Suspect]
     Indication: ANTIVIRAL PROPHYLAXIS
     Dosage: 170 MG, 1 IN 30 D, INTRAMUSCULAR
     Route: 030
     Dates: start: 20060113
  5. SYNAGIS [Suspect]
     Indication: ANTIVIRAL PROPHYLAXIS
     Dosage: 170 MG, 1 IN 30 D, INTRAMUSCULAR
     Route: 030
     Dates: start: 20060301

REACTIONS (1)
  - ASTHMA [None]
